FAERS Safety Report 9111214 (Version 1)
Quarter: 2013Q1

REPORT INFORMATION
  Report Type: Spontaneous
  Country: US (occurrence: US)
  Receive Date: 20130219
  Receipt Date: 20130219
  Transmission Date: 20140127
  Serious: No
  Sender: FDA-Public Use
  Company Number: US-BRISTOL-MYERS SQUIBB COMPANY-16431736

PATIENT
  Age: 51 Year
  Sex: Female
  Weight: 86 kg

DRUGS (4)
  1. ORENCIA FOR INJ [Suspect]
     Indication: RHEUMATOID ARTHRITIS
     Dosage: THERAPY ON MAR12
     Route: 042
     Dates: start: 20111129
  2. METHOTREXATE [Concomitant]
  3. FOLIC ACID [Concomitant]
  4. CELEBREX [Concomitant]

REACTIONS (2)
  - Urticaria [Recovered/Resolved]
  - Rash [Recovering/Resolving]
